FAERS Safety Report 9265035 (Version 1)
Quarter: 2013Q2

REPORT INFORMATION
  Report Type: Spontaneous
  Country: US (occurrence: None)
  Receive Date: 20130430
  Receipt Date: 20130430
  Transmission Date: 20140414
  Serious: Yes (Hospitalization)
  Sender: FDA-Public Use
  Company Number: None

PATIENT
  Sex: Male
  Weight: 117.94 kg

DRUGS (4)
  1. LURASIDONE [Suspect]
     Indication: MENTAL DISORDER
     Route: 048
     Dates: end: 20130207
  2. ZIPRASIDONE [Suspect]
  3. CELEXA [Concomitant]
  4. VISTARIL [Concomitant]

REACTIONS (1)
  - Psychotic disorder [None]
